FAERS Safety Report 11696922 (Version 2)
Quarter: 2015Q4

REPORT INFORMATION
  Report Type: Spontaneous
  Country: PT (occurrence: PT)
  Receive Date: 20151104
  Receipt Date: 20151112
  Transmission Date: 20160304
  Serious: Yes (Death, Other)
  Sender: FDA-Public Use
  Company Number: PT-GILEAD-2015-0180118

PATIENT
  Age: 54 Year
  Sex: Male

DRUGS (7)
  1. QUETIAPINA [Concomitant]
     Active Substance: QUETIAPINE
     Route: 048
  2. RIBAVIRINA [Concomitant]
     Active Substance: RIBAVIRIN
     Route: 048
  3. TRANXENE T-TAB [Concomitant]
     Active Substance: CLORAZEPATE DIPOTASSIUM
     Route: 048
  4. LIBRAX [Concomitant]
     Active Substance: CHLORDIAZEPOXIDE HYDROCHLORIDE\CLIDINIUM BROMIDE
     Route: 048
  5. LISINOPRIL. [Concomitant]
     Active Substance: LISINOPRIL
     Route: 048
  6. ESCITALOPRAM [Concomitant]
     Active Substance: ESCITALOPRAM OXALATE
     Route: 048
  7. SOVALDI [Suspect]
     Active Substance: SOFOSBUVIR
     Indication: HEPATITIS C
     Dosage: 400 MG, QD
     Route: 048
     Dates: start: 20150601

REACTIONS (2)
  - Hepatic function abnormal [Fatal]
  - Death [Fatal]

NARRATIVE: CASE EVENT DATE: 20150702
